FAERS Safety Report 21358746 (Version 1)
Quarter: 2022Q3

REPORT INFORMATION
  Report Type: Spontaneous
  Country: US (occurrence: None)
  Receive Date: 20220920
  Receipt Date: 20220920
  Transmission Date: 20221027
  Serious: Yes (Hospitalization)
  Sender: FDA-Public Use
  Company Number: None

PATIENT
  Sex: Male

DRUGS (2)
  1. COTELLIC [Suspect]
     Active Substance: COBIMETINIB
     Indication: Malignant melanoma
     Dosage: OTHER FREQUENCY : 21D ON AND 7D OFF;?TAKE THREE (3) TABLETS BY MOUTH AS ONE DOSE ONCE A DAY FOR 21 D
     Route: 048
  2. COTELLIC [Suspect]
     Active Substance: COBIMETINIB
     Dosage: OTHER FREQUENCY : 21D ON AND 7D OFF;?
     Route: 048
     Dates: start: 20220802

REACTIONS (2)
  - Pneumonia [None]
  - Therapy interrupted [None]
